FAERS Safety Report 24613401 (Version 1)
Quarter: 2024Q4

REPORT INFORMATION
  Report Type: Spontaneous
  Country: US (occurrence: None)
  Receive Date: 20241112
  Receipt Date: 20241112
  Transmission Date: 20250115
  Serious: Yes (Other)
  Sender: Public
  Company Number: None

PATIENT
  Age: 65 Year
  Sex: Female
  Weight: 51.75 kg

DRUGS (5)
  1. SHEER TINT BROAD SPECTRUM SPF 45 [Suspect]
     Active Substance: TITANIUM DIOXIDE\ZINC OXIDE
     Indication: Prophylaxis against solar radiation
     Dosage: TOPICAL
     Route: 061
     Dates: start: 20240318, end: 20240801
  2. ESTRADIOL [Concomitant]
     Active Substance: ESTRADIOL
  3. ACYCLOVIR [Concomitant]
     Active Substance: ACYCLOVIR
  4. FISH OIL [Concomitant]
  5. multivitamin [Concomitant]

REACTIONS (4)
  - Pruritus [None]
  - Swelling face [None]
  - Viral infection [None]
  - Pyrexia [None]

NARRATIVE: CASE EVENT DATE: 20240801
